FAERS Safety Report 8967689 (Version 1)
Quarter: 2012Q4

REPORT INFORMATION
  Report Type: Spontaneous
  Country: GR (occurrence: None)
  Receive Date: 20121210
  Receipt Date: 20121210
  Transmission Date: 20130627
  Serious: Yes (Hospitalization)
  Sender: FDA-Public Use
  Company Number: THQ2012A10812

PATIENT
  Age: 70 Year
  Sex: Male

DRUGS (2)
  1. ACTOS (PIOGLITAZONE HYDROCHLORIDE) [Suspect]
     Indication: TYPE 2 DIABETES MELLITUS
     Dosage: 30 mg (1 D) Per oral
     Route: 048
  2. ACTOS (PIOGLITAZONE HYDROCHLORIDE) [Suspect]
     Indication: TYPE 2 DIABETES MELLITUS
     Dosage: 45 mg Per Oral
     Route: 048
     Dates: start: 2009, end: 20091109

REACTIONS (1)
  - Bladder papilloma [None]
